FAERS Safety Report 10903950 (Version 1)
Quarter: 2015Q1

REPORT INFORMATION
  Report Type: Spontaneous
  Country: IR (occurrence: None)
  Receive Date: 20150306
  Receipt Date: 20150306
  Transmission Date: 20150721
  Serious: Yes (Death, Hospitalization)
  Sender: FDA-Public Use
  Company Number: NSR_01981_2015

PATIENT

DRUGS (1)
  1. TRAMADOL (TRAMADOL) [Suspect]
     Active Substance: TRAMADOL
     Indication: PRODUCT USED FOR UNKNOWN INDICATION
     Dosage: DF; NOT THE PRESCRIBED AMOUNT

REACTIONS (3)
  - Exposure via ingestion [None]
  - Intentional overdose [None]
  - Poisoning [None]
